FAERS Safety Report 10743973 (Version 1)
Quarter: 2015Q1

REPORT INFORMATION
  Report Type: Report from Study
  Country: US (occurrence: US)
  Receive Date: 20150128
  Receipt Date: 20150128
  Transmission Date: 20150721
  Serious: Yes (Hospitalization)
  Sender: FDA-Public Use
  Company Number: US-BIOGENIDEC-2015BI009782

PATIENT
  Age: 58 Year
  Sex: Male

DRUGS (15)
  1. METHOCARBAMOL. [Concomitant]
     Active Substance: METHOCARBAMOL
  2. METOPROLOL TARTRATE. [Concomitant]
     Active Substance: METOPROLOL TARTRATE
  3. TOPIRAMATE. [Concomitant]
     Active Substance: TOPIRAMATE
  4. TECFIDERA [Suspect]
     Active Substance: DIMETHYL FUMARATE
     Indication: MULTIPLE SCLEROSIS
     Route: 048
     Dates: start: 20140911
  5. GEMFIBROZIL. [Concomitant]
     Active Substance: GEMFIBROZIL
  6. LYRICA [Concomitant]
     Active Substance: PREGABALIN
  7. OXYCODONE [Concomitant]
     Active Substance: OXYCODONE
  8. CLINDAMYCIN [Concomitant]
     Active Substance: CLINDAMYCIN\CLINDAMYCIN PHOSPHATE
  9. DIVALPROEX [Concomitant]
     Active Substance: DIVALPROEX SODIUM
  10. CHLORTHALIDONE. [Concomitant]
     Active Substance: CHLORTHALIDONE
  11. GABAPENTIN. [Concomitant]
     Active Substance: GABAPENTIN
  12. AMITRIPTYLINE [Concomitant]
     Active Substance: AMITRIPTYLINE
  13. BACLOFEN. [Concomitant]
     Active Substance: BACLOFEN
  14. LISINOPRIL. [Concomitant]
     Active Substance: LISINOPRIL
  15. METFORMIN [Concomitant]
     Active Substance: METFORMIN HYDROCHLORIDE

REACTIONS (1)
  - Arthritis infective [Not Recovered/Not Resolved]

NARRATIVE: CASE EVENT DATE: 20150117
